FAERS Safety Report 25383066 (Version 1)
Quarter: 2025Q2

REPORT INFORMATION
  Report Type: Report from Study
  Country: US (occurrence: US)
  Receive Date: 20250602
  Receipt Date: 20250602
  Transmission Date: 20250717
  Serious: No
  Sender: SANDOZ
  Company Number: US-SANDOZ-SDZ2025US036995

PATIENT
  Sex: Male

DRUGS (2)
  1. OMNITROPE [Suspect]
     Active Substance: SOMATROPIN
     Indication: Short stature
     Dosage: 0.44 MG, QD, OMNITROPE 5 MG/ML POWDER AND SOLVENT FOR SOLUTION FOR INJECTION
     Route: 058
  2. OMNITROPE [Suspect]
     Active Substance: SOMATROPIN
     Indication: Short stature
     Dosage: 0.44 MG, QD, OMNITROPE 5 MG/ML POWDER AND SOLVENT FOR SOLUTION FOR INJECTION
     Route: 058

REACTIONS (2)
  - Injection site pain [Unknown]
  - Product administration error [Unknown]
